FAERS Safety Report 8888554 (Version 1)
Quarter: 2012Q4

REPORT INFORMATION
  Report Type: 
  Country: GB (occurrence: GB)
  Receive Date: 20121106
  Receipt Date: 20121106
  Transmission Date: 20130627
  Serious: Yes (Hospitalization, Disabling, Other)
  Sender: FDA-Public Use
  Company Number: GB-ROCHE-1151698

PATIENT
  Age: 20 Year
  Sex: Male
  Weight: 60 kg

DRUGS (2)
  1. ROACCUTANE [Suspect]
     Indication: ACNE CONGLOBATA
     Dosage: Dosage interval: 1 Day
     Route: 048
     Dates: start: 201202, end: 201204
  2. AMITRIPTYLINE [Concomitant]
     Route: 065

REACTIONS (3)
  - Anxiety disorder [Not Recovered/Not Resolved]
  - Nausea [Not Recovered/Not Resolved]
  - Panic attack [Recovered/Resolved]
